FAERS Safety Report 7700047-3 (Version None)
Quarter: 2011Q3

REPORT INFORMATION
  Report Type: 
  Country: None (occurrence: None)
  Receive Date: 20110822
  Receipt Date: 20110808
  Transmission Date: 20111222
  Serious: Yes (Other)
  Sender: FDA-Public Use
  Company Number: US-ELI_LILLY_AND_COMPANY-US201108003853

PATIENT
  Sex: Female

DRUGS (7)
  1. CYMBALTA [Suspect]
     Dosage: 60 MG, QD
  2. CYMBALTA [Suspect]
     Dosage: UNK UNK, QOD
     Dates: start: 20110301
  3. AVONEX [Concomitant]
     Dosage: UNK, WEEKLY (1/W)
  4. CYMBALTA [Suspect]
     Indication: DEPRESSION
     Dosage: 30 MG, QD
     Dates: start: 20090101
  5. CYMBALTA [Suspect]
     Dosage: 60 MG, QD
  6. SOMA [Concomitant]
     Dosage: UNK, PRN
  7. CYMBALTA [Suspect]
     Dosage: UNK UNK, OTHER

REACTIONS (11)
  - ALTERED STATE OF CONSCIOUSNESS [None]
  - DRUG WITHDRAWAL SYNDROME [None]
  - ANXIETY [None]
  - PARAESTHESIA [None]
  - FEELING ABNORMAL [None]
  - DRUG INEFFECTIVE [None]
  - EMOTIONAL POVERTY [None]
  - VERTIGO [None]
  - CRYING [None]
  - MULTIPLE SCLEROSIS [None]
  - DEPRESSION [None]
